FAERS Safety Report 8123937-9 (Version None)
Quarter: 2012Q1

REPORT INFORMATION
  Report Type: 
  Country: None (occurrence: None)
  Receive Date: 20120209
  Receipt Date: 20120120
  Transmission Date: 20120608
  Serious: No
  Sender: FDA-Public Use
  Company Number: CA-JNJFOC-20120202202

PATIENT
  Sex: Male
  Weight: 80 kg

DRUGS (4)
  1. PREDNISONE [Concomitant]
     Route: 048
  2. REMICADE [Suspect]
     Indication: COLITIS ULCERATIVE
     Route: 042
     Dates: start: 20110701
  3. IMURAN [Concomitant]
     Route: 048
  4. SULFASALAZINE [Concomitant]
     Route: 048

REACTIONS (1)
  - HERPES ZOSTER [None]
